FAERS Safety Report 17004898 (Version 1)
Quarter: 2019Q4

REPORT INFORMATION
  Report Type: Spontaneous
  Country: FR (occurrence: FR)
  Receive Date: 20191107
  Receipt Date: 20191107
  Transmission Date: 20200122
  Serious: Yes (Other)
  Sender: FDA-Public Use
  Company Number: FR-009507513-1911FRA001169

PATIENT
  Age: 49 Year
  Sex: Male

DRUGS (1)
  1. CELESTENE 4MG/1ML [Suspect]
     Active Substance: BETAMETHASONE
     Indication: HYPERSENSITIVITY
     Dosage: 1 DOSAGE FORM, TOTAL
     Route: 042
     Dates: start: 2008

REACTIONS (1)
  - Rash [Recovered/Resolved]

NARRATIVE: CASE EVENT DATE: 2008
